FAERS Safety Report 6114521-7 (Version None)
Quarter: 2009Q1

REPORT INFORMATION
  Report Type: 
  Country: None (occurrence: None)
  Receive Date: 20090313
  Receipt Date: 20090306
  Transmission Date: 20090719
  Serious: Yes (Other)
  Sender: FDA-Public Use
  Company Number: BR-ROCHE-619725

PATIENT
  Sex: Male
  Weight: 85 kg

DRUGS (5)
  1. VALIUM [Suspect]
     Indication: DEPRESSION
     Route: 048
     Dates: start: 20090201
  2. CLONAZEPAM [Suspect]
     Indication: SEDATIVE THERAPY
     Route: 048
     Dates: start: 20090201
  3. RISPERIDONE [Concomitant]
     Indication: HYPERTENSION
     Route: 048
     Dates: start: 20081225
  4. VASOPRIL PLUS [Concomitant]
     Indication: HYPERTENSION
     Route: 048
     Dates: start: 20081225
  5. PANTOPRAZOLE SODIUM [Concomitant]
     Indication: GASTRITIS
     Route: 048
     Dates: start: 20080101

REACTIONS (6)
  - ANXIETY [None]
  - BLOOD PRESSURE INCREASED [None]
  - INSOMNIA [None]
  - LABORATORY TEST ABNORMAL [None]
  - PAIN IN EXTREMITY [None]
  - SEDATION [None]
